FAERS Safety Report 5655649-5 (Version None)
Quarter: 2008Q1

REPORT INFORMATION
  Report Type: 
  Country: None (occurrence: None)
  Receive Date: 20080307
  Receipt Date: 20080222
  Transmission Date: 20080703
  Serious: Yes (Other)
  Sender: FDA-Public Use
  Company Number: AU-GENENTECH-256599

PATIENT
  Sex: Male

DRUGS (5)
  1. RAPTIVA [Suspect]
     Indication: PSORIASIS
     Dosage: 0.74 ML, SINGLE
     Route: 058
     Dates: start: 20070130, end: 20080214
  2. RAPTIVA [Suspect]
     Dosage: 1 ML, 1/WEEK
     Route: 058
     Dates: end: 20080214
  3. LIPITOR [Concomitant]
     Indication: BLOOD CHOLESTEROL INCREASED
     Route: 048
  4. MOBIC [Concomitant]
     Indication: INFLAMMATION
     Dosage: 7.5 MG, QD
     Route: 048
  5. COVERSYL [Concomitant]
     Indication: HYPERTENSION
     Route: 048

REACTIONS (1)
  - CHRONIC LYMPHOCYTIC LEUKAEMIA [None]
